FAERS Safety Report 8201741-0 (Version None)
Quarter: 2012Q1

REPORT INFORMATION
  Report Type: 
  Country: None (occurrence: None)
  Receive Date: 20120312
  Receipt Date: 20120301
  Transmission Date: 20120608
  Serious: Yes (Hospitalization)
  Sender: FDA-Public Use
  Company Number: PL-ROCHE-1046434

PATIENT
  Sex: Male
  Weight: 73.3 kg

DRUGS (4)
  1. CLEMASTIN [Concomitant]
     Indication: PREMEDICATION
     Route: 042
     Dates: start: 20110726
  2. ACETAMINOPHEN [Concomitant]
     Indication: PREMEDICATION
     Route: 048
     Dates: start: 20110726
  3. MABTHERA [Suspect]
     Indication: CHRONIC LYMPHOCYTIC LEUKAEMIA
     Route: 042
     Dates: start: 20110726
  4. HYDROCORTISONE [Concomitant]
     Indication: PREMEDICATION
     Route: 042
     Dates: start: 20110726

REACTIONS (4)
  - HYPERHIDROSIS [None]
  - DYSPNOEA [None]
  - BLOOD PRESSURE DECREASED [None]
  - NAUSEA [None]
